FAERS Safety Report 9496334 (Version 1)
Quarter: 2013Q3

REPORT INFORMATION
  Report Type: Spontaneous
  Country: US (occurrence: US)
  Receive Date: 20130904
  Receipt Date: 20130904
  Transmission Date: 20140515
  Serious: Yes (Other)
  Sender: FDA-Public Use
  Company Number: US-JNJFOC-20130815839

PATIENT
  Age: 48 Year
  Sex: Female
  Weight: 131.09 kg

DRUGS (3)
  1. SIMPONI [Suspect]
     Indication: RHEUMATOID ARTHRITIS
     Route: 058
     Dates: start: 201208
  2. LEFLUNOMIDE [Concomitant]
     Indication: RHEUMATOID ARTHRITIS
     Route: 048
     Dates: start: 2004
  3. LEVOTHYROXINE [Concomitant]
     Indication: THYROID DISORDER
     Route: 048
     Dates: start: 2012

REACTIONS (2)
  - Intervertebral disc degeneration [Not Recovered/Not Resolved]
  - Drug dose omission [Not Recovered/Not Resolved]
